FAERS Safety Report 6451117-1 (Version None)
Quarter: 2009Q4

REPORT INFORMATION
  Report Type: 
  Country: None (occurrence: None)
  Receive Date: 20091123
  Receipt Date: 20091111
  Transmission Date: 20100525
  Serious: Yes (Disabling, Other)
  Sender: FDA-Public Use
  Company Number: DE-PFIZER INC-2009237048

PATIENT
  Age: 58 Year
  Sex: Male
  Weight: 76 kg

DRUGS (9)
  1. REVATIO [Suspect]
     Indication: PULMONARY HYPERTENSION
     Dosage: 40 MG, 3X/DAY
     Route: 048
     Dates: start: 20080701
  2. CORTISONE [Concomitant]
     Dosage: UNK
  3. ACETYLCYSTEINE [Concomitant]
     Indication: SARCOIDOSIS
     Dosage: 600 MG, 1X/DAY
     Dates: start: 20070101
  4. ACETYLCYSTEINE [Concomitant]
     Indication: CHRONIC OBSTRUCTIVE PULMONARY DISEASE
  5. SYMBICORT [Concomitant]
     Indication: SARCOIDOSIS
     Dosage: 2 DF, 2X/DAY
     Route: 055
  6. SYMBICORT [Concomitant]
     Indication: CHRONIC OBSTRUCTIVE PULMONARY DISEASE
  7. AZATHIOPRINE [Concomitant]
     Indication: SARCOIDOSIS
     Dosage: 50 MG, 3X/DAY
     Dates: start: 20070101
  8. AZATHIOPRINE [Concomitant]
     Indication: CHRONIC OBSTRUCTIVE PULMONARY DISEASE
  9. VENLAFAXINE HCL [Concomitant]
     Dosage: 75 MG/DAY

REACTIONS (11)
  - DYSAESTHESIA [None]
  - DYSPEPSIA [None]
  - GAIT DISTURBANCE [None]
  - HEADACHE [None]
  - HEART RATE INCREASED [None]
  - OEDEMA PERIPHERAL [None]
  - PAIN IN EXTREMITY [None]
  - POLYNEUROPATHY [None]
  - SKIN DISCOLOURATION [None]
  - SOMNOLENCE [None]
  - TREMOR [None]
